FAERS Safety Report 4502833-X (Version None)
Quarter: 2004Q4

REPORT INFORMATION
  Report Type: 
  Country: None (occurrence: None)
  Receive Date: 20041116
  Receipt Date: 20041116
  Transmission Date: 20050328
  Serious: Yes (Other)
  Sender: FDA-Public Use
  Company Number: None

PATIENT
  Age: 48 Year
  Sex: Male
  Weight: 93 kg

DRUGS (1)
  1. MEROPENEM [Suspect]

REACTIONS (2)
  - RASH [None]
  - URTICARIA [None]
